FAERS Safety Report 8810047 (Version 2)
Quarter: 2012Q4

REPORT INFORMATION
  Report Type: 
  Country: US (occurrence: US)
  Receive Date: 20120926
  Receipt Date: 20121010
  Transmission Date: 20130627
  Serious: Yes (Hospitalization, Congenital Anomaly)
  Sender: FDA-Public Use
  Company Number: US-GLAXOSMITHKLINE-A0994966A

PATIENT
  Age: 0 Year
  Sex: Female

DRUGS (2)
  1. PAXIL CR [Suspect]
     Indication: PRODUCT USED FOR UNKNOWN INDICATION
     Dosage: 12.5MG Per day
     Route: 064
     Dates: start: 200503, end: 200504
  2. PAROXETINE [Suspect]
     Indication: PRODUCT USED FOR UNKNOWN INDICATION
     Dosage: 20MG Per day
     Route: 064
     Dates: start: 200505, end: 200507

REACTIONS (9)
  - Fallot^s tetralogy [Unknown]
  - Premature baby [Unknown]
  - Breech delivery [Unknown]
  - Ventricular septal defect [Unknown]
  - Respiratory distress [Unknown]
  - Lung disorder [Unknown]
  - Duodenal atresia [Unknown]
  - Lung disorder [Unknown]
  - Foetal exposure during pregnancy [Unknown]
